FAERS Safety Report 4372844-6 (Version None)
Quarter: 2004Q2

REPORT INFORMATION
  Report Type: 
  Country: None (occurrence: None)
  Receive Date: 20040526
  Receipt Date: 20040510
  Transmission Date: 20050107
  Serious: Yes (Hospitalization)
  Sender: FDA-Public Use
  Company Number: 2004AP01925

PATIENT
  Age: 70 Year
  Sex: Male

DRUGS (24)
  1. IRESSA [Suspect]
     Indication: NON-SMALL CELL LUNG CANCER
     Dosage: 250 MG DAILY PO
     Route: 048
     Dates: start: 20040126, end: 20040315
  2. IRESSA [Suspect]
     Indication: NON-SMALL CELL LUNG CANCER
     Dosage: 250 MG DAILY PO
     Route: 048
     Dates: start: 20040319, end: 20040324
  3. ASPIRIN [Concomitant]
  4. ITOROL [Concomitant]
  5. NITROPEN [Concomitant]
  6. LAC B [Concomitant]
  7. CONIEL [Concomitant]
  8. PLETAL [Concomitant]
  9. NITRODERM [Concomitant]
  10. TENORMIN [Concomitant]
  11. ATARAX [Concomitant]
  12. OPSO [Concomitant]
  13. INOLET [Concomitant]
  14. BEZATOL - SLOW RELEASE [Concomitant]
  15. LOXONIN [Concomitant]
  16. SELBEX [Concomitant]
  17. MAGLAX [Concomitant]
  18. MS CONTIN [Concomitant]
  19. MORPHINE HYDROCHLORIDE [Concomitant]
  20. DEPAS [Concomitant]
  21. BASEN [Concomitant]
  22. CISPLATIN [Concomitant]
  23. GEMCITABINE [Concomitant]
  24. TANATRIL ^ALGOL^ [Concomitant]

REACTIONS (14)
  - ANGINA PECTORIS [None]
  - ANXIETY [None]
  - ARTHRALGIA [None]
  - CONFUSIONAL STATE [None]
  - CONSTIPATION [None]
  - DIARRHOEA [None]
  - HYPOXIA [None]
  - INTERSTITIAL LUNG DISEASE [None]
  - MALIGNANT NEOPLASM PROGRESSION [None]
  - METASTASES TO LUNG [None]
  - MOOD ALTERED [None]
  - PNEUMONIA [None]
  - RASH [None]
  - VOMITING [None]
